FAERS Safety Report 13515007 (Version 1)
Quarter: 2017Q2

REPORT INFORMATION
  Report Type: Spontaneous
  Country: CA (occurrence: CA)
  Receive Date: 20170504
  Receipt Date: 20170504
  Transmission Date: 20170830
  Serious: Yes (Other)
  Sender: FDA-Public Use
  Company Number: CA-GLAXOSMITHKLINE-CA2017GSK059017

PATIENT
  Age: 70 Year
  Sex: Female

DRUGS (5)
  1. DOMPERIDONE [Concomitant]
     Active Substance: DOMPERIDONE
     Dosage: 10 MG, TID
  2. FLONASE [Concomitant]
     Active Substance: FLUTICASONE PROPIONATE
     Indication: SEASONAL ALLERGY
     Dosage: UNK
     Dates: start: 2001
  3. FLUTICASONE PROPIONATE. [Suspect]
     Active Substance: FLUTICASONE PROPIONATE
     Indication: SEASONAL ALLERGY
     Dosage: 1 DF, Z
     Dates: start: 20170419, end: 20170419
  4. NEXIUM [Concomitant]
     Active Substance: ESOMEPRAZOLE MAGNESIUM
  5. CLONIDINE. [Concomitant]
     Active Substance: CLONIDINE
     Indication: MENOPAUSAL SYMPTOMS
     Dosage: 0.25 MG, UNK

REACTIONS (13)
  - Product quality issue [Unknown]
  - Heart rate increased [Unknown]
  - Hypersensitivity [Unknown]
  - Throat irritation [Unknown]
  - Malaise [Unknown]
  - Nasal discomfort [Unknown]
  - Blood pressure increased [Unknown]
  - Respiratory rate increased [Unknown]
  - Tremor [Unknown]
  - Anaphylactic reaction [Unknown]
  - Pharyngeal oedema [Unknown]
  - Dyspnoea [Unknown]
  - Pruritus [Unknown]

NARRATIVE: CASE EVENT DATE: 20170419
